FAERS Safety Report 10069767 (Version 1)
Quarter: 2014Q2

REPORT INFORMATION
  Report Type: Spontaneous
  Country: CR (occurrence: CR)
  Receive Date: 20140410
  Receipt Date: 20140410
  Transmission Date: 20141212
  Serious: Yes (Hospitalization, Other)
  Sender: FDA-Public Use
  Company Number: CR-009507513-1404CRI005249

PATIENT
  Age: 22 Year
  Sex: Female

DRUGS (1)
  1. TIENAM [Suspect]
     Indication: ANTIBIOTIC THERAPY
     Dosage: UNK, DAILY
     Route: 042

REACTIONS (2)
  - Surgery [Unknown]
  - Convulsion [Unknown]
